FAERS Safety Report 6240666-7 (Version None)
Quarter: 2009Q2

REPORT INFORMATION
  Report Type: 
  Country: None (occurrence: None)
  Receive Date: 20090623
  Receipt Date: 20090212
  Transmission Date: 20091009
  Serious: No
  Sender: FDA-Public Use
  Company Number: US-ASTRAZENECA-2008UW28020

PATIENT
  Age: 84 Year
  Sex: Male
  Weight: 73.5 kg

DRUGS (11)
  1. PULMICORT RESPULES [Suspect]
     Indication: CHRONIC OBSTRUCTIVE PULMONARY DISEASE
     Dosage: 0.25 MG, TWICE DAILY
     Route: 055
     Dates: start: 20081001
  2. PROFORMIST [Concomitant]
  3. ALBUTEROL [Concomitant]
  4. PEPCID [Concomitant]
  5. ALTACE [Concomitant]
  6. ZOCOR [Concomitant]
  7. FLORAQ [Concomitant]
  8. BENEFIBER [Concomitant]
  9. MUCINEX [Concomitant]
  10. ASPIRIN [Concomitant]
  11. UNSPECIFIED [Concomitant]
     Indication: MYASTHENIA GRAVIS

REACTIONS (2)
  - RASH GENERALISED [None]
  - WHEEZING [None]
